FAERS Safety Report 7906734-6 (Version None)
Quarter: 2011Q4

REPORT INFORMATION
  Report Type: 
  Country: None (occurrence: None)
  Receive Date: 20111110
  Receipt Date: 20111102
  Transmission Date: 20120403
  Serious: Yes (Hospitalization)
  Sender: FDA-Public Use
  Company Number: FR-JNJFOC-20110701743

PATIENT
  Sex: Male

DRUGS (8)
  1. ATHYMIL [Suspect]
     Indication: DEPRESSION
     Route: 048
  2. DIPIPERON [Suspect]
     Route: 048
     Dates: start: 20110316
  3. ACETAMINOPHEN AND TRAMADOL HCL [Suspect]
     Indication: PAIN
     Dosage: 37.5 MG TRAMADOL HYDRCHLORIDE/325 MG ACETAMINOPHEN
     Route: 048
  4. IMOVANE [Suspect]
     Indication: DEPRESSION
     Route: 048
  5. MEMANTINE HYDROCHLORIDE [Suspect]
     Indication: DEMENTIA ALZHEIMER'S TYPE
     Route: 048
     Dates: end: 20110316
  6. AMLODIPINE [Concomitant]
     Indication: HYPERTENSION
     Route: 048
  7. LASIX [Concomitant]
     Indication: PRODUCT USED FOR UNKNOWN INDICATION
     Route: 048
  8. DIPIPERON [Suspect]
     Indication: DEMENTIA ALZHEIMER'S TYPE
     Dosage: 40 MG/ML
     Route: 048
     Dates: end: 20110315

REACTIONS (2)
  - FALL [None]
  - SOMNOLENCE [None]
